FAERS Safety Report 9286639 (Version 2)
Quarter: 2013Q2

REPORT INFORMATION
  Report Type: Spontaneous
  Country: IE (occurrence: IE)
  Receive Date: 20130513
  Receipt Date: 20130612
  Transmission Date: 20140414
  Serious: Yes (Hospitalization)
  Sender: FDA-Public Use
  Company Number: IE-BAYER-2013-056371

PATIENT
  Age: 72 Year
  Sex: Male

DRUGS (11)
  1. CIPROFLOXACIN [Suspect]
     Indication: LOWER RESPIRATORY TRACT INFECTION
     Dosage: 500 MG, BID
  2. ESOMEPRAZOLE [Concomitant]
     Indication: DYSPEPSIA
  3. ALFACALCIDOL [Concomitant]
  4. PREGABALIN [Concomitant]
  5. ASPIRIN [Concomitant]
  6. ATORVASTATIN [Concomitant]
  7. FOLIC ACID [Concomitant]
  8. SEVELAMER [Concomitant]
  9. CALCIUM ACETATE [Concomitant]
  10. GLICLAZIDE [Concomitant]
  11. DARBEPOETIN ALFA [Concomitant]

REACTIONS (2)
  - Choreoathetosis [Recovered/Resolved]
  - Incorrect dose administered [None]
